FAERS Safety Report 12597774 (Version 1)
Quarter: 2016Q3

REPORT INFORMATION
  Report Type: Spontaneous
  Country: US (occurrence: None)
  Receive Date: 20160726
  Receipt Date: 20160726
  Transmission Date: 20161109
  Serious: No
  Sender: FDA-Public Use
  Company Number: None

PATIENT
  Age: 51 Year
  Sex: Female

DRUGS (1)
  1. AFINITOR [Suspect]
     Active Substance: EVEROLIMUS

REACTIONS (7)
  - Vision blurred [None]
  - Dry mouth [None]
  - Abdominal pain [None]
  - Skin disorder [None]
  - Sputum increased [None]
  - Cough [None]
  - Hordeolum [None]

NARRATIVE: CASE EVENT DATE: 20160601
